FAERS Safety Report 8499223-4 (Version None)
Quarter: 2012Q2

REPORT INFORMATION
  Report Type: 
  Country: None (occurrence: None)
  Receive Date: 20120405
  Receipt Date: 20101209
  Transmission Date: 20120825
  Serious: Yes (Other)
  Sender: FDA-Public Use
  Company Number: PHHY2010US84249

PATIENT
  Age: 58 Year
  Sex: Female

DRUGS (1)
  1. RECLAST [Suspect]
     Indication: OSTEOPENIA
     Dosage: 5 MG, ONCE A YEAR, INTRAVENOUS
     Route: 042

REACTIONS (1)
  - OSTEOARTHRITIS [None]
